FAERS Safety Report 22924997 (Version 4)
Quarter: 2023Q4

REPORT INFORMATION
  Report Type: Spontaneous
  Country: JP (occurrence: JP)
  Receive Date: 20230908
  Receipt Date: 20231024
  Transmission Date: 20240110
  Serious: Yes (Other)
  Sender: FDA-Public Use
  Company Number: JP-ONO-2023JP022420

PATIENT
  Age: 64 Year
  Sex: Female
  Weight: 59.2 kg

DRUGS (11)
  1. BRAFTOVI [Suspect]
     Active Substance: ENCORAFENIB
     Indication: Colon cancer
     Dosage: 300 MG, EVERYDAY
     Route: 048
     Dates: start: 20230711, end: 20230725
  2. BRAFTOVI [Suspect]
     Active Substance: ENCORAFENIB
     Dosage: 300 MG, EVERYDAY
     Route: 048
     Dates: start: 20230808
  3. MEKTOVI [Suspect]
     Active Substance: BINIMETINIB
     Indication: Colon cancer
     Dosage: 45 MG, Q12H
     Route: 048
     Dates: start: 20230711, end: 20230725
  4. ERBITUX [Concomitant]
     Active Substance: CETUXIMAB
     Indication: Colon cancer
     Dosage: 600 MG
     Route: 041
     Dates: start: 20230711, end: 20230711
  5. ERBITUX [Concomitant]
     Active Substance: CETUXIMAB
     Dosage: 400 MG
     Route: 041
     Dates: end: 20230725
  6. ERBITUX [Concomitant]
     Active Substance: CETUXIMAB
     Dosage: 400 MG
     Route: 041
     Dates: start: 20230808
  7. GLYCOSAMINOGLYCANS [Concomitant]
     Active Substance: GLYCOSAMINOGLYCANS
     Indication: Prophylaxis
     Dosage: UNK, Q12H
     Route: 061
     Dates: start: 20230711
  8. LOCOID [Concomitant]
     Active Substance: HYDROCORTISONE BUTYRATE
     Indication: Prophylaxis
     Dosage: UNK, Q12H
     Route: 061
     Dates: start: 20230711
  9. BETAMETHASONE DIPROPIONATE [Concomitant]
     Active Substance: BETAMETHASONE DIPROPIONATE
     Indication: Prophylaxis
     Dosage: UNK, Q12H
     Route: 061
     Dates: start: 20230711
  10. MINOCYCLINE HYDROCHLORIDE [Concomitant]
     Active Substance: MINOCYCLINE HYDROCHLORIDE
     Indication: Prophylaxis
     Dosage: 100 MG, Q12H
     Route: 048
     Dates: start: 20230711
  11. GLYCOSAMINOGLYCANS [Concomitant]
     Active Substance: GLYCOSAMINOGLYCANS
     Indication: Prophylaxis
     Dosage: UNK, Q12H (LOTION (EXCEPT LOTION FOR EYE))
     Route: 061
     Dates: start: 20230711

REACTIONS (4)
  - Renal impairment [Recovered/Resolved]
  - Glomerular filtration rate decreased [Recovered/Resolved]
  - Proteinuria [Recovered/Resolved]
  - Blood creatinine increased [Recovered/Resolved]

NARRATIVE: CASE EVENT DATE: 20230718
